FAERS Safety Report 6142909-7 (Version None)
Quarter: 2009Q3

REPORT INFORMATION
  Report Type: 
  Country: None (occurrence: None)
  Receive Date: 20090403
  Receipt Date: 20090326
  Transmission Date: 20100115
  Serious: Yes (Hospitalization, Other)
  Sender: FDA-Public Use
  Company Number: US-BAYER-200810012NA

PATIENT
  Age: 76 Year
  Sex: Male
  Weight: 73 kg

DRUGS (28)
  1. SORAFENIB [Suspect]
     Indication: PROSTATE CANCER METASTATIC
     Dosage: TOTAL DAILY DOSE: 800 MG  UNIT DOSE: 200 MG
     Route: 048
     Dates: start: 20071017, end: 20080323
  2. MITOXANTRONE [Suspect]
     Indication: PROSTATE CANCER METASTATIC
     Dosage: C1D1
     Route: 042
     Dates: start: 20071017, end: 20071017
  3. MITOXANTRONE [Suspect]
     Route: 042
     Dates: start: 20071218, end: 20080318
  4. ZOMETA [Concomitant]
     Route: 042
  5. ULTRAM [Concomitant]
     Dosage: TOTAL DAILY DOSE: 1 MG
     Route: 048
  6. BUSPAR [Concomitant]
     Dosage: TOTAL DAILY DOSE: 100 MG
     Route: 048
  7. BUSPAR [Concomitant]
  8. KYTRIL [Concomitant]
  9. COMPAZINE [Concomitant]
  10. AVODART [Concomitant]
     Dosage: TOTAL DAILY DOSE: 0.5 MG
     Route: 048
  11. TOPROL-XL [Concomitant]
  12. DIGOXIN [Concomitant]
     Route: 048
  13. DIGOXIN [Concomitant]
     Route: 048
  14. PRAVACHOL [Concomitant]
     Dosage: TOTAL DAILY DOSE: 40 MG
     Route: 048
  15. COUMADIN [Concomitant]
     Dosage: TOTAL DAILY DOSE: 7 MG
     Route: 048
  16. COUMADIN [Concomitant]
     Dosage: AS USED: 4 MG
  17. COUMADIN [Concomitant]
     Dosage: TOTAL DAILY DOSE: 2 MG
     Route: 048
  18. PAXIL [Concomitant]
  19. DESYREL [Concomitant]
  20. EMLA [Concomitant]
  21. ALKA SELTZER [Concomitant]
  22. NORVASC [Concomitant]
     Route: 048
  23. ZOCOR [Concomitant]
  24. PROPOXYPHENE NAPSYLATE AND ACETAMINOPHEN [Concomitant]
     Dosage: PRN
     Route: 048
  25. NITROGLYCERIN [Concomitant]
     Route: 060
  26. SULFAMETHOXAZOLE AND TRIMETHOPRIM [Concomitant]
     Dosage: FOR 10 DAYS AS NEEDED
     Route: 048
  27. AMBIEN [Concomitant]
  28. TRELSTAR [Concomitant]

REACTIONS (25)
  - ANAEMIA [None]
  - AORTIC VALVE SCLEROSIS [None]
  - BLOOD CREATININE INCREASED [None]
  - BLOOD UREA INCREASED [None]
  - BLOOD URINE PRESENT [None]
  - CHEST PAIN [None]
  - DEEP VEIN THROMBOSIS [None]
  - DISEASE PROGRESSION [None]
  - DYSPHAGIA [None]
  - ELECTROCARDIOGRAM ABNORMAL [None]
  - ELECTROCARDIOGRAM ST SEGMENT DEPRESSION [None]
  - HYPOKALAEMIA [None]
  - HYPOPHOSPHATAEMIA [None]
  - MALNUTRITION [None]
  - MUSCULAR WEAKNESS [None]
  - NEUTROPENIA [None]
  - OESOPHAGEAL CANDIDIASIS [None]
  - OESOPHAGITIS [None]
  - PAIN IN EXTREMITY [None]
  - PERIPHERAL MOTOR NEUROPATHY [None]
  - PLATELET COUNT DECREASED [None]
  - PULMONARY HYPERTENSION [None]
  - SINUS ARRHYTHMIA [None]
  - URINE KETONE BODY PRESENT [None]
  - URINE LEUKOCYTE ESTERASE POSITIVE [None]
